FAERS Safety Report 6162261-0 (Version None)
Quarter: 2009Q2

REPORT INFORMATION
  Report Type: 
  Country: None (occurrence: None)
  Receive Date: 20090417
  Receipt Date: 20090414
  Transmission Date: 20091009
  Serious: Yes (Other)
  Sender: FDA-Public Use
  Company Number: 191549USA

PATIENT
  Age: 64 Year
  Sex: Female

DRUGS (2)
  1. BISOPROLOL FUMARATE [Suspect]
     Indication: CARDIAC FAILURE
     Dosage: 2.5 MG, 1 IN 1 D
     Dates: start: 20081216
  2. RAMIPRIL [Suspect]
     Indication: CARDIAC FAILURE
     Dosage: 5 MG, 1 IN 1 D, ORAL
     Route: 048
     Dates: start: 20081216, end: 20081221

REACTIONS (6)
  - DEHYDRATION [None]
  - HYPOTENSION [None]
  - OLIGURIA [None]
  - RENAL ARTERY STENOSIS [None]
  - RENAL FAILURE ACUTE [None]
  - TACHYCARDIA [None]
